FAERS Safety Report 11420788 (Version 1)
Quarter: 2015Q3

REPORT INFORMATION
  Report Type: Spontaneous
  Country: US (occurrence: US)
  Receive Date: 20150826
  Receipt Date: 20150826
  Transmission Date: 20151125
  Serious: No
  Sender: FDA-Public Use
  Company Number: US-MYLANLABS-2015M1019761

PATIENT
  Sex: Male

DRUGS (3)
  1. CLORAZEPIC ACID [Suspect]
     Active Substance: CLORAZEPIC ACID
     Dosage: UNK
  2. VIMPAT [Suspect]
     Active Substance: LACOSAMIDE
     Dosage: UNK
  3. PHENOBARBITAL. [Suspect]
     Active Substance: PHENOBARBITAL
     Dosage: UNK

REACTIONS (3)
  - Hyperventilation [Not Recovered/Not Resolved]
  - Inappropriate affect [Not Recovered/Not Resolved]
  - Tremor [Not Recovered/Not Resolved]
